FAERS Safety Report 14610758 (Version 1)
Quarter: 2018Q1

REPORT INFORMATION
  Report Type: Spontaneous
  Country: DE (occurrence: DE)
  Receive Date: 20180308
  Receipt Date: 20180308
  Transmission Date: 20180509
  Serious: Yes (Other)
  Sender: FDA-Public Use
  Company Number: DE-CONCORDIA PHARMACEUTICALS INC.-E2B_00010505

PATIENT
  Age: 30 Year
  Sex: Female

DRUGS (2)
  1. PREDNISOLONE. [Suspect]
     Active Substance: PREDNISOLONE
     Indication: CROHN^S DISEASE
     Dosage: UNK
     Route: 065
     Dates: start: 20170701, end: 20171119
  2. ENTYVIO [Suspect]
     Active Substance: VEDOLIZUMAB
     Indication: CROHN^S DISEASE
     Dosage: UNK
     Route: 042
     Dates: start: 20170101, end: 20171106

REACTIONS (11)
  - Chills [Unknown]
  - Hot flush [Not Recovered/Not Resolved]
  - Rash [Not Recovered/Not Resolved]
  - Heart rate increased [Unknown]
  - Hypersensitivity [Unknown]
  - Depersonalisation/derealisation disorder [Unknown]
  - Erythema nodosum [Unknown]
  - Vision blurred [Unknown]
  - Erythema [Unknown]
  - Palpitations [Unknown]
  - Visual impairment [Unknown]

NARRATIVE: CASE EVENT DATE: 20170101
